FAERS Safety Report 15585699 (Version 1)
Quarter: 2018Q4

REPORT INFORMATION
  Report Type: Spontaneous
  Country: BE (occurrence: BE)
  Receive Date: 20181105
  Receipt Date: 20181105
  Transmission Date: 20190205
  Serious: Yes (Hospitalization)
  Sender: FDA-Public Use
  Company Number: BE-MYLANLABS-2018M1080242

PATIENT
  Age: 75 Year
  Sex: Female

DRUGS (1)
  1. ALENDRONATE [Suspect]
     Active Substance: ALENDRONATE SODIUM
     Indication: OSTEOPOROSIS
     Dosage: HAD BEEN RECEIVING FROM 10 YEARS
     Route: 048

REACTIONS (4)
  - Impaired healing [Recovered/Resolved]
  - Jaw fracture [Recovered/Resolved]
  - Facial bones fracture [Recovered/Resolved]
  - Fracture displacement [Recovered/Resolved]
